FAERS Safety Report 16482606 (Version 1)
Quarter: 2019Q2

REPORT INFORMATION
  Report Type: Spontaneous
  Country: DE (occurrence: DE)
  Receive Date: 20190627
  Receipt Date: 20190627
  Transmission Date: 20190711
  Serious: Yes (Death, Other)
  Sender: FDA-Public Use
  Company Number: PHHY2019DE146648

PATIENT

DRUGS (2)
  1. LEVETIRACETAM. [Suspect]
     Active Substance: LEVETIRACETAM
     Dosage: MATERNAL DOSE 1000 MG, QD (500 MG, 2X/DAY (BID))
     Route: 064
  2. LEVETIRACETAM. [Suspect]
     Active Substance: LEVETIRACETAM
     Indication: EPILEPSY
     Dosage: MATERNAL DOSE 1500 MG, QD (750 MG, 2X/DAY (BID))
     Route: 064

REACTIONS (2)
  - Cerebral haemorrhage [Fatal]
  - Foetal exposure during pregnancy [Unknown]
